FAERS Safety Report 6888642-5 (Version None)
Quarter: 2010Q3

REPORT INFORMATION
  Report Type: 
  Country: None (occurrence: None)
  Receive Date: 20100730
  Receipt Date: 20071001
  Transmission Date: 20110219
  Serious: No
  Sender: FDA-Public Use
  Company Number: US-PFIZER INC-2007082630

PATIENT
  Sex: Male
  Weight: 86.363 kg

DRUGS (1)
  1. LIPITOR [Suspect]
     Dates: start: 20061101, end: 20070701

REACTIONS (5)
  - BALANCE DISORDER [None]
  - FATIGUE [None]
  - MUSCULAR WEAKNESS [None]
  - NEUROPATHY PERIPHERAL [None]
  - PARAESTHESIA [None]
